FAERS Safety Report 5253678-7 (Version None)
Quarter: 2007Q1

REPORT INFORMATION
  Report Type: 
  Country: None (occurrence: None)
  Receive Date: 20070301
  Receipt Date: 20070219
  Transmission Date: 20070707
  Serious: Yes (Other)
  Sender: FDA-Public Use
  Company Number: DE-PFIZER INC-2007014348

PATIENT
  Sex: Female
  Weight: 72 kg

DRUGS (8)
  1. LYRICA [Suspect]
     Indication: POLYNEUROPATHY
     Route: 048
  2. PALLADON [Concomitant]
  3. CYMBALTA [Concomitant]
     Dates: start: 20060101
  4. LEVOTHYROXINE SODIUM [Concomitant]
  5. PARIET [Concomitant]
  6. INSULIN DETEMIR [Concomitant]
  7. ACTRAPID [Concomitant]
  8. NOVORAPID [Concomitant]

REACTIONS (1)
  - BLOOD GLUCOSE INCREASED [None]
